FAERS Safety Report 9982992 (Version 1)
Quarter: 2014Q1

REPORT INFORMATION
  Report Type: Spontaneous
  Country: US (occurrence: None)
  Receive Date: 20140131
  Receipt Date: 20140131
  Transmission Date: 20141002
  Serious: Yes (Other)
  Sender: FDA-Public Use
  Company Number: 084088

PATIENT
  Sex: Male

DRUGS (3)
  1. LEVETIRACETAM [Suspect]
     Dosage: 750 MG X 2 TAB IN THE AM AND 2 TABS IN THE PM
     Dates: end: 201303
  2. DEPAKOTE [Concomitant]
  3. TEGRETOL [Concomitant]

REACTIONS (4)
  - Grand mal convulsion [None]
  - Petit mal epilepsy [None]
  - Tongue injury [None]
  - Inappropriate schedule of drug administration [None]
